FAERS Safety Report 5489479-4 (Version None)
Quarter: 2007Q4

REPORT INFORMATION
  Report Type: 
  Country: None (occurrence: None)
  Receive Date: 20071016
  Receipt Date: 20071016
  Transmission Date: 20080405
  Serious: Yes (Hospitalization)
  Sender: FDA-Public Use
  Company Number: None

PATIENT
  Age: 78 Year
  Sex: Male

DRUGS (2)
  1. CIPROFLOXACIN [Suspect]
     Indication: OSTEOMYELITIS
     Dates: start: 20070926, end: 20071003
  2. AMPICILLIN AND SULBACTAM [Suspect]
     Dosage: 1.5GM  QID  IV
     Route: 042
     Dates: start: 20071003, end: 20071004

REACTIONS (1)
  - RASH [None]
